FAERS Safety Report 17809977 (Version 1)
Quarter: 2020Q2

REPORT INFORMATION
  Report Type: Spontaneous
  Country: CA (occurrence: CA)
  Receive Date: 20200521
  Receipt Date: 20200521
  Transmission Date: 20200714
  Serious: Yes (Other)
  Sender: FDA-Public Use
  Company Number: CA-ROCHE-2598925

PATIENT
  Age: 16 Year
  Sex: Female

DRUGS (15)
  1. HYDROXYCHLOROQUINE SULFATE. [Concomitant]
     Active Substance: HYDROXYCHLOROQUINE SULFATE
  2. SPIRONOLACTONE. [Concomitant]
     Active Substance: SPIRONOLACTONE
  3. ACTEMRA [Suspect]
     Active Substance: TOCILIZUMAB
     Indication: PRODUCT USED FOR UNKNOWN INDICATION
     Route: 058
  4. APO-LEFLUNOMIDE [Suspect]
     Active Substance: LEFLUNOMIDE
     Indication: PRODUCT USED FOR UNKNOWN INDICATION
     Route: 065
  5. HUMIRA [Suspect]
     Active Substance: ADALIMUMAB
     Indication: PRODUCT USED FOR UNKNOWN INDICATION
     Route: 058
  6. ACTEMRA [Suspect]
     Active Substance: TOCILIZUMAB
     Indication: PRODUCT USED FOR UNKNOWN INDICATION
     Route: 042
  7. ORENCIA [Suspect]
     Active Substance: ABATACEPT
     Indication: RHEUMATOID ARTHRITIS
     Route: 065
  8. RABEPRAZOLE [Concomitant]
     Active Substance: RABEPRAZOLE
  9. SULFASALAZINE. [Concomitant]
     Active Substance: SULFASALAZINE
  10. REMICADE [Suspect]
     Active Substance: INFLIXIMAB
     Indication: CROHN^S DISEASE
     Route: 042
  11. CALCIUM CARBONATE/VITAMIN D3 [Concomitant]
     Active Substance: CALCIUM CARBONATE\CHOLECALCIFEROL
  12. CIMZIA [Concomitant]
     Active Substance: CERTOLIZUMAB PEGOL
  13. SALBUTAMOL [Concomitant]
     Active Substance: ALBUTEROL
  14. METHOTREXATE. [Suspect]
     Active Substance: METHOTREXATE
     Indication: PRODUCT USED FOR UNKNOWN INDICATION
     Route: 065
  15. SYMBICORT [Concomitant]
     Active Substance: BUDESONIDE\FORMOTEROL FUMARATE DIHYDRATE
     Route: 065

REACTIONS (19)
  - Asthenia [Unknown]
  - Neck pain [Unknown]
  - Pain [Unknown]
  - Rheumatoid arthritis [Unknown]
  - Drug hypersensitivity [Unknown]
  - Arthralgia [Unknown]
  - Back pain [Unknown]
  - Dizziness [Unknown]
  - Drug ineffective [Unknown]
  - Headache [Unknown]
  - Fatigue [Unknown]
  - Musculoskeletal pain [Unknown]
  - Sinusitis [Unknown]
  - Body temperature increased [Unknown]
  - Intra-abdominal fluid collection [Unknown]
  - Weight decreased [Unknown]
  - Off label use [Unknown]
  - Pain in extremity [Unknown]
  - Swelling [Unknown]
